FAERS Safety Report 6815046-3 (Version None)
Quarter: 2010Q3

REPORT INFORMATION
  Report Type: 
  Country: None (occurrence: None)
  Receive Date: 20100702
  Receipt Date: 20090512
  Transmission Date: 20110219
  Serious: No
  Sender: FDA-Public Use
  Company Number: A0783768A

PATIENT
  Age: 55 Year
  Sex: Male

DRUGS (4)
  1. PARNATE [Suspect]
     Indication: DEPRESSION
     Dosage: 20MG TWICE PER DAY
     Route: 048
     Dates: start: 20010101
  2. LITHIUM CARBONATE [Concomitant]
  3. DEPLIN [Concomitant]
  4. INDERAL [Concomitant]

REACTIONS (4)
  - AFFECTIVE DISORDER [None]
  - DEPRESSION [None]
  - FATIGUE [None]
  - THERAPEUTIC RESPONSE DECREASED [None]
